FAERS Safety Report 6148807-7 (Version None)
Quarter: 2009Q2

REPORT INFORMATION
  Report Type: 
  Country: None (occurrence: None)
  Receive Date: 20090408
  Receipt Date: 20090331
  Transmission Date: 20091009
  Serious: Yes (Life-Threatening, Other)
  Sender: FDA-Public Use
  Company Number: JP-ABBOTT-09P-087-0561981-00

PATIENT
  Sex: Female
  Weight: 45 kg

DRUGS (10)
  1. KLARICID TABLETS [Suspect]
     Indication: UPPER RESPIRATORY TRACT INFLAMMATION
     Dosage: 400 MG DAILY
     Route: 048
     Dates: start: 20090213, end: 20090214
  2. DASEN [Suspect]
     Indication: UPPER RESPIRATORY TRACT INFLAMMATION
     Dosage: 10 MG TID
     Route: 048
     Dates: start: 20090213, end: 20090224
  3. CANDESARTAN CILEXETIL [Concomitant]
     Indication: HYPERTENSION
     Dosage: 8 MG DAILY
     Route: 048
     Dates: start: 20080602
  4. AZELNIDIPINE [Concomitant]
     Indication: HYPERTENSION
     Dosage: 16 MG DAILY
     Route: 048
     Dates: start: 20080602
  5. ATORVASTATIN CALCIUM [Concomitant]
     Indication: HYPERLIPIDAEMIA
     Dosage: 5 MG DAILY
     Route: 048
  6. WARFARIN POTASSIUM [Concomitant]
     Indication: AORTIC VALVE REPLACEMENT
     Route: 048
     Dates: start: 20090206
  7. ISOSORBIDE MONONITRATE [Concomitant]
     Indication: ANGINA PECTORIS
     Route: 048
     Dates: start: 20090206
  8. FUROSEMIDE [Concomitant]
     Indication: CARDIAC FAILURE
     Route: 048
     Dates: start: 20090206
  9. ASPIRIN [Concomitant]
     Indication: AORTIC VALVE REPLACEMENT
     Route: 048
     Dates: start: 20090216
  10. DIPYRIDAMOLE [Concomitant]
     Indication: ANGINA PECTORIS
     Route: 048
     Dates: start: 20090206

REACTIONS (2)
  - LOSS OF CONSCIOUSNESS [None]
  - URINARY INCONTINENCE [None]
